FAERS Safety Report 6625867 (Version 30)
Quarter: 2014Q1

REPORT INFORMATION
  Report Type: Spontaneous
  Country: US (occurrence: US)
  Receive Date: 20080428
  Receipt Date: 20140128
  Transmission Date: 20141002
  Serious: Yes (Hospitalization, Other)
  Sender: FDA-Public Use
  Company Number: PHEH2008US03987

PATIENT
  Sex: Female
  Weight: 78.01 kg

DRUGS (66)
  1. ZOMETA [Suspect]
     Indication: METASTASES TO BONE
     Dosage: 4 MG, QMO
     Route: 042
     Dates: start: 1997
  2. ZOMETA [Suspect]
     Indication: BREAST CANCER
  3. AREDIA [Suspect]
     Dosage: 90 MG,
     Route: 041
  4. RESTORIL [Suspect]
     Dosage: 1 DF
  5. TAMOXIFEN [Suspect]
  6. LITHIUM [Suspect]
     Indication: BIPOLAR I DISORDER
  7. MIDAZOLAM [Concomitant]
     Dosage: 2.5 MG, BID
  8. FENTANYL [Concomitant]
  9. ONDANSETRON [Concomitant]
     Dosage: 4 MG,
  10. CEFAZOLIN [Concomitant]
     Dosage: 1 G, Q8H
  11. VANCOMYCIN [Concomitant]
  12. COLACE [Concomitant]
     Dosage: 100 MG, BID
     Route: 048
  13. PHENERGAN [Concomitant]
  14. MAALOX                                  /USA/ [Concomitant]
  15. ACETAMINOPHEN [Concomitant]
     Route: 048
  16. ALBUTEROL [Concomitant]
  17. ANASTROZOLE [Concomitant]
  18. ARIPIPRAZOLE [Concomitant]
     Dosage: 10 MG, QD
  19. HEPARIN SODIUM [Concomitant]
  20. DILAUDID [Concomitant]
     Route: 042
  21. TORADOL [Concomitant]
  22. ATIVAN [Concomitant]
  23. TOPROL XL [Concomitant]
  24. ZOFRAN [Concomitant]
  25. PERCOCET [Concomitant]
     Route: 048
  26. PROTONIX [Concomitant]
     Route: 048
  27. ANCEF [Concomitant]
     Route: 042
  28. EPHEDRINE [Concomitant]
  29. MORPHINE [Concomitant]
  30. NALBUPHINE [Concomitant]
  31. NALOXONE [Concomitant]
     Route: 042
  32. EFFEXOR [Concomitant]
     Dosage: 37.5 MG, TID
     Route: 048
  33. AMBIEN [Concomitant]
     Route: 048
  34. DEMEROL [Concomitant]
     Dosage: 12.5 MG, BID
     Route: 042
  35. DURAGESIC [Concomitant]
     Dosage: 100 UG, Q72H
  36. OXYCONTIN [Concomitant]
     Dosage: 20 MG, Q12H
  37. ACIPHEX [Concomitant]
  38. XANAX [Concomitant]
  39. CARAFATE [Concomitant]
  40. PEPCID [Concomitant]
  41. LEVAQUIN [Concomitant]
  42. VICODIN [Concomitant]
  43. AUGMENTIN [Concomitant]
  44. KETOCONAZOLE [Concomitant]
  45. BIAXIN [Concomitant]
  46. REPLIVA [Concomitant]
  47. LAMICTAL ^BURROUGHS WELLCOME^ [Concomitant]
  48. LISINOPRIL [Concomitant]
  49. ARIMIDEX [Concomitant]
  50. AMITRIPTYLINE [Concomitant]
  51. VENLAFAXINE [Concomitant]
  52. METOPROLOL [Concomitant]
  53. AMLODIPINE [Concomitant]
  54. LAMOTRIGINE [Concomitant]
  55. METFORMIN HYDROCHLORIDE [Concomitant]
  56. METHYLPREDNISOLONE [Concomitant]
     Dosage: 4 MG,
     Route: 048
     Dates: start: 20091001
  57. PREVACID [Concomitant]
     Dosage: 30 MG,
     Route: 048
     Dates: start: 20061201
  58. ROBAXIN [Concomitant]
  59. PERIDEX [Concomitant]
  60. PENICILLIN V [Concomitant]
  61. FENOFIBRATE [Concomitant]
  62. ABILIFY [Concomitant]
     Dosage: 15 MEQ/KG, QD
  63. CONCERTA [Concomitant]
     Dosage: 60 MG, QD
  64. ADDERALL [Concomitant]
     Dosage: 10 MG, QD
     Route: 048
  65. BUSPIRONE [Concomitant]
     Dosage: 5 MG, BID
     Route: 048
  66. NORTRIPTYLINE [Concomitant]
     Dosage: 50 MG, BID
     Route: 048

REACTIONS (166)
  - Osteonecrosis of jaw [Unknown]
  - Loose tooth [Unknown]
  - Hypophagia [Unknown]
  - Weight decreased [Unknown]
  - Depressed mood [Unknown]
  - Gingivitis [Unknown]
  - General physical health deterioration [Unknown]
  - Pain [Unknown]
  - Anxiety [Unknown]
  - Decreased interest [Unknown]
  - Sinus tachycardia [Unknown]
  - Facial bones fracture [Unknown]
  - Arthropathy [Unknown]
  - Tendonitis [Unknown]
  - Hypertension [Unknown]
  - Breast cancer recurrent [Unknown]
  - Metastases to spine [Unknown]
  - Abdominal pain [Unknown]
  - Bone pain [Unknown]
  - Osteoarthritis [Unknown]
  - Metastases to bone [Unknown]
  - Diaphragmatic hernia [Unknown]
  - Pulmonary fibrosis [Unknown]
  - Pulmonary mass [Unknown]
  - Pneumothorax [Unknown]
  - Anaemia [Unknown]
  - Menorrhagia [Unknown]
  - Peptic ulcer [Unknown]
  - Menopausal symptoms [Unknown]
  - Urinary tract infection [Unknown]
  - Exposed bone in jaw [Unknown]
  - Confusional state [Unknown]
  - Haemorrhoids [Unknown]
  - Tooth abscess [Unknown]
  - Bipolar I disorder [Unknown]
  - Tremor [Not Recovered/Not Resolved]
  - Appendicitis [Unknown]
  - Intervertebral disc protrusion [Unknown]
  - Toxicity to various agents [Unknown]
  - Renal failure acute [Recovered/Resolved]
  - Intervertebral disc degeneration [Unknown]
  - Spinal osteoarthritis [Unknown]
  - Overdose [Unknown]
  - Splenic lesion [Unknown]
  - Asthma [Unknown]
  - Odynophagia [Unknown]
  - Oesophagitis [Unknown]
  - Fall [Unknown]
  - Pleural effusion [Unknown]
  - Pleural fibrosis [Unknown]
  - Acquired diaphragmatic eventration [Unknown]
  - Ovarian cyst [Unknown]
  - Uterine haemorrhage [Unknown]
  - Essential hypertension [Unknown]
  - Cellulitis [Unknown]
  - Alveolar osteitis [Unknown]
  - Osteomyelitis [Unknown]
  - Periodontitis [Unknown]
  - Gingival pain [Unknown]
  - Toothache [Unknown]
  - Gingivitis [Unknown]
  - Herpes zoster [Unknown]
  - Rhinitis allergic [Unknown]
  - Lumbar radiculopathy [Unknown]
  - Hypercholesterolaemia [Unknown]
  - Hiatus hernia [Unknown]
  - Otitis media acute [Unknown]
  - Lymphadenitis [Unknown]
  - Pharyngitis [Unknown]
  - Dermatitis [Unknown]
  - Hyperlipidaemia [Unknown]
  - Rectal haemorrhage [Unknown]
  - Impaired gastric emptying [Unknown]
  - Bronchospasm [Unknown]
  - Chronic sinusitis [Unknown]
  - Restless legs syndrome [Unknown]
  - Hepatic steatosis [Unknown]
  - Onychomycosis [Unknown]
  - Hyperkeratosis [Unknown]
  - Facet joint syndrome [Unknown]
  - Epistaxis [Unknown]
  - Nasal septum perforation [Unknown]
  - Migraine [Unknown]
  - Micturition urgency [Unknown]
  - Dysuria [Unknown]
  - Urinary incontinence [Unknown]
  - Pollakiuria [Unknown]
  - Urinary hesitation [Unknown]
  - Urinary retention [Unknown]
  - Escherichia infection [Unknown]
  - Memory impairment [Unknown]
  - Cystitis [Unknown]
  - Morton^s neuralgia [Unknown]
  - Nephrolithiasis [Unknown]
  - Renal cyst [Unknown]
  - Nasal polyps [Unknown]
  - Facial pain [Unknown]
  - Deafness [Unknown]
  - Post inflammatory pigmentation change [Unknown]
  - Excoriation [Unknown]
  - Neoplasm [Unknown]
  - Xerosis [Unknown]
  - Neurodermatitis [Unknown]
  - Pulmonary granuloma [Unknown]
  - Laryngospasm [Unknown]
  - Compression fracture [Unknown]
  - Upper respiratory tract infection [Unknown]
  - Tooth loss [Unknown]
  - Cholelithiasis [Unknown]
  - Bronchitis [Unknown]
  - Oropharyngeal pain [Unknown]
  - Ear pain [Unknown]
  - Vitamin D deficiency [Unknown]
  - Nasal congestion [Unknown]
  - Sinus headache [Unknown]
  - Pruritus [Unknown]
  - Dyspareunia [Unknown]
  - Atrophic vulvovaginitis [Unknown]
  - Thirst [Unknown]
  - Temperature intolerance [Unknown]
  - Paraesthesia [Unknown]
  - Fungal infection [Unknown]
  - Histoplasmosis [Unknown]
  - Obsessive-compulsive disorder [Unknown]
  - Osteitis [Unknown]
  - Road traffic accident [Unknown]
  - Arthritis [Unknown]
  - Upper-airway cough syndrome [Unknown]
  - Epicondylitis [Unknown]
  - Trigger finger [Unknown]
  - Joint stiffness [Unknown]
  - Myalgia [Unknown]
  - Headache [Unknown]
  - Pain in extremity [Unknown]
  - Eye pain [Unknown]
  - Skin burning sensation [Unknown]
  - Gingival abscess [Unknown]
  - Oral herpes [Unknown]
  - Tonsillitis [Unknown]
  - Gingival bleeding [Unknown]
  - Breath odour [Unknown]
  - Foot fracture [Unknown]
  - Abdominal distension [Unknown]
  - Dyspepsia [Unknown]
  - Articular calcification [Unknown]
  - Bone disorder [Unknown]
  - Exostosis [Unknown]
  - Malaise [Unknown]
  - Vision blurred [Unknown]
  - Diplopia [Unknown]
  - Haematochezia [Unknown]
  - Amnesia [Unknown]
  - Arthralgia [Unknown]
  - Angina pectoris [Unknown]
  - Ligament sprain [Unknown]
  - Bunion [Unknown]
  - Chondromalacia [Unknown]
  - Foot deformity [Unknown]
  - Iliotibial band syndrome [Unknown]
  - Metatarsalgia [Unknown]
  - Plantar fasciitis [Unknown]
  - Tarsal tunnel syndrome [Unknown]
  - Limb asymmetry [Unknown]
  - Stress fracture [Unknown]
  - Joint effusion [Unknown]
  - Hypokinesia [Unknown]
